FAERS Safety Report 13968142 (Version 8)
Quarter: 2019Q1

REPORT INFORMATION
  Report Type: Spontaneous
  Country: US (occurrence: US)
  Receive Date: 20170914
  Receipt Date: 20190312
  Transmission Date: 20190417
  Serious: Yes (Other)
  Sender: FDA-Public Use
  Company Number: US-INCYTE CORPORATION-2017IN007601

PATIENT

DRUGS (18)
  1. JAKAFI [Suspect]
     Active Substance: RUXOLITINIB
     Dosage: 5 MG DAILY EXCEPT FOR 5 MG BID ON SUNDAY
     Route: 048
  2. JAKAFI [Suspect]
     Active Substance: RUXOLITINIB
     Dosage: 5 MG ONCE DAILY MONDAY THROUGH FRIDAY AND 5 MG TWICE DAILY ON SATURDAY AND SUNDAY
     Route: 048
  3. ATORVASTATIN [Concomitant]
     Active Substance: ATORVASTATIN
     Indication: PRODUCT USED FOR UNKNOWN INDICATION
     Dosage: UNK
     Route: 065
  4. ALBUTEROL                          /00139501/ [Concomitant]
     Active Substance: ALBUTEROL
     Indication: PRODUCT USED FOR UNKNOWN INDICATION
     Dosage: UNK
     Route: 065
  5. JAKAFI [Suspect]
     Active Substance: RUXOLITINIB
     Indication: MYELOFIBROSIS
     Dosage: 5 MG, EVERY TUESDAY, THURSDAY, SATURDAY AND SUNDAY
     Route: 048
  6. JAKAFI [Suspect]
     Active Substance: RUXOLITINIB
     Dosage: 5 MG ONCE DAILY FIVE TIMES A WEEK
     Route: 048
  7. KLOR-CON [Concomitant]
     Active Substance: POTASSIUM CHLORIDE
     Indication: PRODUCT USED FOR UNKNOWN INDICATION
     Dosage: UNK
     Route: 065
  8. DOXYCYCLINE. [Concomitant]
     Active Substance: DOXYCYCLINE
     Indication: PRODUCT USED FOR UNKNOWN INDICATION
     Dosage: UNK
     Route: 065
  9. ALLOPURINOL. [Concomitant]
     Active Substance: ALLOPURINOL
     Indication: PRODUCT USED FOR UNKNOWN INDICATION
     Dosage: UNK
     Route: 065
  10. FLUTICASONE. [Concomitant]
     Active Substance: FLUTICASONE
     Indication: PRODUCT USED FOR UNKNOWN INDICATION
     Dosage: UNK, PRN
     Route: 065
  11. JAKAFI [Suspect]
     Active Substance: RUXOLITINIB
     Dosage: 5 MG DAILY EXCEPT FOR 5 MG BID ON SATURDAY AND SUNDAY
     Route: 065
  12. JAKAFI [Suspect]
     Active Substance: RUXOLITINIB
     Dosage: 5MG QD (MONDAY, TUESDAY, WEDNESDAY, 5MG BID OTHER DAYS
     Route: 048
     Dates: start: 20170823
  13. SUCCINATE SODIUM [Concomitant]
     Indication: PRODUCT USED FOR UNKNOWN INDICATION
     Dosage: UNK
     Route: 065
  14. METOPROLOL. [Concomitant]
     Active Substance: METOPROLOL
     Indication: PRODUCT USED FOR UNKNOWN INDICATION
     Dosage: UNK
     Route: 065
  15. JAKAFI [Suspect]
     Active Substance: RUXOLITINIB
     Dosage: 5 MG, QD
     Route: 048
  16. AMLODIPINE [Concomitant]
     Active Substance: AMLODIPINE BESYLATE
     Indication: PRODUCT USED FOR UNKNOWN INDICATION
     Dosage: UNK
     Route: 065
  17. JAKAFI [Suspect]
     Active Substance: RUXOLITINIB
     Dosage: 5 MG QD MON-SAT AND 5 MG BID ON SUNDAY
     Route: 065
  18. PULMICORT TURBUHALER [Concomitant]
     Active Substance: BUDESONIDE
     Indication: PRODUCT USED FOR UNKNOWN INDICATION
     Dosage: UNK
     Route: 065

REACTIONS (18)
  - Platelet count decreased [Recovering/Resolving]
  - Abdominal distension [Unknown]
  - Shoulder deformity [Unknown]
  - Increased tendency to bruise [Unknown]
  - Constipation [Unknown]
  - Impaired healing [Unknown]
  - White blood cell count increased [Unknown]
  - Pruritus [Not Recovered/Not Resolved]
  - Haemoglobin decreased [Unknown]
  - Vessel puncture site bruise [Unknown]
  - Rash papular [Unknown]
  - Scab [Unknown]
  - Back pain [Unknown]
  - Intervertebral disc degeneration [Unknown]
  - Headache [Recovering/Resolving]
  - Fatigue [Unknown]
  - Faeces hard [Unknown]
  - Night sweats [Unknown]
